FAERS Safety Report 14673605 (Version 2)
Quarter: 2018Q2

REPORT INFORMATION
  Report Type: Report from Study
  Country: CA (occurrence: CA)
  Receive Date: 20180323
  Receipt Date: 20180418
  Transmission Date: 20180711
  Serious: Yes (Hospitalization, Other)
  Sender: FDA-Public Use
  Company Number: CA-BRISTOL-MYERS SQUIBB COMPANY-BMS-2017-065825

PATIENT
  Age: 49 Year
  Sex: Female

DRUGS (1)
  1. ABATACEPT [Suspect]
     Active Substance: ABATACEPT
     Indication: RHEUMATOID ARTHRITIS
     Dosage: 125 MG, QWK
     Route: 058
     Dates: start: 20170720

REACTIONS (36)
  - Gait disturbance [Unknown]
  - Stress [Unknown]
  - Musculoskeletal stiffness [Unknown]
  - Condition aggravated [Recovering/Resolving]
  - Injection site pain [Unknown]
  - Diarrhoea [Recovering/Resolving]
  - Pain of skin [Unknown]
  - Insomnia [Unknown]
  - Alopecia [Unknown]
  - Sneezing [Unknown]
  - Viral infection [Recovering/Resolving]
  - Platelet count decreased [Recovered/Resolved]
  - Dry eye [Recovering/Resolving]
  - Neutropenia [Recovering/Resolving]
  - Laryngitis [Unknown]
  - Haemorrhage [Recovered/Resolved]
  - Musculoskeletal pain [Unknown]
  - Confusional state [Unknown]
  - Pain in extremity [Not Recovered/Not Resolved]
  - Peripheral swelling [Unknown]
  - Rhinorrhoea [Unknown]
  - Fall [Unknown]
  - Stomatitis [Recovered/Resolved]
  - Asthenia [Unknown]
  - Oedema [Not Recovered/Not Resolved]
  - Pain [Unknown]
  - Abdominal wall mass [Unknown]
  - Throat irritation [Recovered/Resolved]
  - Cough [Unknown]
  - Fatigue [Recovering/Resolving]
  - Constipation [Recovering/Resolving]
  - Nervousness [Unknown]
  - Nasopharyngitis [Unknown]
  - Oral candidiasis [Recovered/Resolved]
  - Dry throat [Recovering/Resolving]
  - Weight decreased [Recovering/Resolving]

NARRATIVE: CASE EVENT DATE: 20170720
